FAERS Safety Report 10328440 (Version 3)
Quarter: 2014Q3

REPORT INFORMATION
  Report Type: Report from Study
  Country: BE (occurrence: BE)
  Receive Date: 20140721
  Receipt Date: 20140918
  Transmission Date: 20150326
  Serious: Yes (Hospitalization)
  Sender: FDA-Public Use
  Company Number: BE-ROCHE-1437053

PATIENT
  Age: 84 Year
  Weight: 62 kg

DRUGS (3)
  1. PERTUZUMAB [Suspect]
     Active Substance: PERTUZUMAB
     Indication: BREAST CANCER
     Dosage: 840MG LOADING DOSE?ALST DOSE PRIOR TO SAE- 24/FEB/2014
     Route: 042
     Dates: start: 20140224
  2. CYCLOPHOSPHAMIDE. [Suspect]
     Active Substance: CYCLOPHOSPHAMIDE
     Indication: BREAST CANCER
     Dosage: LAST DOSE PRIOR TO AE: 24/FEB/2014
     Route: 048
     Dates: start: 20140224
  3. TRASTUZUMAB [Suspect]
     Active Substance: TRASTUZUMAB
     Indication: BREAST CANCER
     Dosage: 8MG/KG LOADING DOSE?ALST DOSE PRIOR TO SAE- 24/FEB/2014
     Route: 042
     Dates: start: 20140224

REACTIONS (1)
  - Bronchospasm [Recovered/Resolved]

NARRATIVE: CASE EVENT DATE: 20140224
